FAERS Safety Report 20824078 (Version 2)
Quarter: 2022Q3

REPORT INFORMATION
  Report Type: Spontaneous
  Country: JP (occurrence: JP)
  Receive Date: 20220513
  Receipt Date: 20220802
  Transmission Date: 20221027
  Serious: Yes (Other)
  Sender: FDA-Public Use
  Company Number: JP-SA-2021SA069436

PATIENT
  Age: 67 Year
  Sex: Male
  Weight: 78 kg

DRUGS (12)
  1. FLUDARA [Suspect]
     Active Substance: FLUDARABINE PHOSPHATE
     Indication: Bone marrow conditioning regimen
     Dosage: 125 MG/M2
     Route: 065
  2. THYMOGLOBULINE [Suspect]
     Active Substance: LAPINE T-LYMPHOCYTE IMMUNE GLOBULIN
     Indication: Bone marrow conditioning regimen
     Dosage: 2 MG/KG
     Route: 041
  3. MELPHALAN [Suspect]
     Active Substance: MELPHALAN
     Indication: Bone marrow conditioning regimen
     Dosage: 140 MG/M2
     Route: 065
  4. TACROLIMUS [Concomitant]
     Active Substance: TACROLIMUS
     Indication: Prophylaxis against graft versus host disease
     Dosage: UNK
     Route: 065
  5. METHOTREXATE [Concomitant]
     Active Substance: METHOTREXATE
     Indication: Prophylaxis against graft versus host disease
     Dosage: UNK
     Route: 065
  6. HEPARIN SODIUM [Concomitant]
     Active Substance: HEPARIN SODIUM
     Indication: Prophylaxis
     Route: 065
  7. URSODIOL [Concomitant]
     Active Substance: URSODIOL
     Indication: Prophylaxis
     Route: 065
  8. ACYCLOVIR [Concomitant]
     Active Substance: ACYCLOVIR
     Indication: Infection prophylaxis
     Route: 065
  9. FLUCONAZOLE [Concomitant]
     Active Substance: FLUCONAZOLE
     Indication: Infection prophylaxis
     Route: 065
  10. CEFEPIME HYDROCHLORIDE [Concomitant]
     Active Substance: CEFEPIME HYDROCHLORIDE
     Indication: Febrile neutropenia
     Route: 065
  11. MEROPENEM [Concomitant]
     Active Substance: MEROPENEM
     Indication: Staphylococcal bacteraemia
     Route: 065
  12. TEICOPLANIN [Concomitant]
     Active Substance: TEICOPLANIN
     Indication: Staphylococcal bacteraemia
     Route: 065

REACTIONS (13)
  - Venoocclusive liver disease [Recovering/Resolving]
  - Blood bilirubin increased [Recovering/Resolving]
  - Weight increased [Recovering/Resolving]
  - Blood lactate dehydrogenase increased [Recovering/Resolving]
  - Ascites [Recovering/Resolving]
  - Red cell fragmentation syndrome [Recovering/Resolving]
  - Refractoriness to platelet transfusion [Recovering/Resolving]
  - Renal impairment [Recovering/Resolving]
  - Pyrexia [Recovering/Resolving]
  - Bilirubin conjugated increased [Recovering/Resolving]
  - Epistaxis [Recovering/Resolving]
  - Blood creatinine increased [Recovering/Resolving]
  - Jaundice [Recovering/Resolving]
